FAERS Safety Report 7353340 (Version 4)
Quarter: 2013Q4

REPORT INFORMATION
  Report Type: Spontaneous
  Country: US (occurrence: US)
  Receive Date: 20100413
  Receipt Date: 20131115
  Transmission Date: 20140711
  Serious: Yes (Hospitalization)
  Sender: FDA-Public Use
  Company Number: US-BAYER-201018613NA

PATIENT
  Age: 21 Year
  Sex: Female

DRUGS (5)
  1. YAZ [Suspect]
     Indication: PRODUCT USED FOR UNKNOWN INDICATION
     Dosage: UNK UNK, UNK
     Route: 048
     Dates: start: 2007, end: 2010
  2. YASMIN [Suspect]
     Indication: PRODUCT USED FOR UNKNOWN INDICATION
     Dosage: UNK UNK, QD
     Route: 048
     Dates: start: 2007, end: 2009
  3. OCELLA [Suspect]
  4. TRI-SPRINTEC [Concomitant]
     Dosage: UNK
     Dates: start: 2008, end: 2009
  5. PRILOSEC [Concomitant]
     Dosage: UNK
     Dates: start: 20090817

REACTIONS (5)
  - Gallbladder disorder [None]
  - Pain [None]
  - Cholecystitis chronic [None]
  - Biliary dyskinesia [None]
  - Gallbladder cholesterolosis [None]
